FAERS Safety Report 20132015 (Version 1)
Quarter: 2021Q4

REPORT INFORMATION
  Report Type: Spontaneous
  Country: US (occurrence: None)
  Receive Date: 20211130
  Receipt Date: 20211130
  Transmission Date: 20220303
  Serious: Yes (Hospitalization, Disabling)
  Sender: FDA-Public Use
  Company Number: None

PATIENT
  Age: 50 Year
  Sex: Male
  Weight: 88.2 kg

DRUGS (1)
  1. OLD SPICE SWEAT DEFENSE PURE SPORT PLUS [Suspect]
     Active Substance: ALUMINUM ZIRCONIUM TRICHLOROHYDREX GLY
     Indication: Hyperhidrosis
     Dosage: OTHER QUANTITY : 1 SPRAY(S);?
     Route: 061
     Dates: start: 20210901, end: 20211125

REACTIONS (3)
  - Plasma cell myeloma [None]
  - Product contamination chemical [None]
  - Recalled product [None]

NARRATIVE: CASE EVENT DATE: 20211022
